FAERS Safety Report 7909801-6 (Version None)
Quarter: 2011Q4

REPORT INFORMATION
  Report Type: 
  Country: None (occurrence: None)
  Receive Date: 20111111
  Receipt Date: 20111109
  Transmission Date: 20120403
  Serious: Yes (Other)
  Sender: FDA-Public Use
  Company Number: US-AMGEN-USASP2011056960

PATIENT
  Age: 64 Year
  Sex: Male
  Weight: 70 kg

DRUGS (5)
  1. LEVITRA [Concomitant]
  2. ALLOPURINOL [Concomitant]
  3. ZOCOR [Concomitant]
  4. NPLATE [Suspect]
     Indication: AUTOIMMUNE THROMBOCYTOPENIA
     Dates: start: 20090702
  5. RESTORIL [Concomitant]

REACTIONS (1)
  - CEREBELLAR ATAXIA [None]
